FAERS Safety Report 9211422 (Version 3)
Quarter: 2013Q2

REPORT INFORMATION
  Report Type: Spontaneous
  Country: US (occurrence: US)
  Receive Date: 20130404
  Receipt Date: 20130521
  Transmission Date: 20140414
  Serious: Yes (Hospitalization, Other)
  Sender: FDA-Public Use
  Company Number: US-009507513-1304USA000961

PATIENT
  Age: 61 Year
  Sex: Female
  Weight: 76.19 kg

DRUGS (5)
  1. HYZAAR [Suspect]
     Indication: HYPERTENSION
     Dosage: 100/12.5 MG ONCE DAILY
     Route: 048
     Dates: start: 20101025, end: 20130125
  2. PRAVACHOL [Concomitant]
     Indication: LIPIDS INCREASED
     Dosage: 80 MG, HS
     Route: 048
     Dates: start: 20070216
  3. NORVASC [Concomitant]
     Dosage: 10 MG, QD
     Route: 048
     Dates: start: 20101025, end: 20130125
  4. COREG [Concomitant]
     Dosage: 12.5 MG, BID
     Dates: start: 20100325, end: 20130125
  5. EXFORGE [Concomitant]
     Dosage: 10/160/12.5 QD
     Route: 048
     Dates: start: 20130126

REACTIONS (2)
  - Blood pressure increased [Recovered/Resolved]
  - Sinus headache [Recovered/Resolved]
